FAERS Safety Report 9194577 (Version 1)
Quarter: 2013Q1

REPORT INFORMATION
  Report Type: Spontaneous
  Country: US (occurrence: US)
  Receive Date: 20130327
  Receipt Date: 20130327
  Transmission Date: 20140127
  Serious: No
  Sender: FDA-Public Use
  Company Number: US-ALLERGAN-1205523US

PATIENT
  Age: 79 Year
  Sex: Female

DRUGS (4)
  1. LATISSE 0.03% [Suspect]
     Indication: HYPOTRICHOSIS
     Dosage: 2 GTT, 3 TIMES WEEKLY
     Route: 061
     Dates: start: 20120107, end: 20120406
  2. LATISSE 0.03% [Suspect]
     Dosage: 2 GTT, 3 TIMES WEEKLY
     Route: 061
     Dates: start: 20110705, end: 20111222
  3. LATISSE 0.03% [Suspect]
     Dosage: 2 GTT, QD
     Route: 061
     Dates: start: 20110202, end: 20110704
  4. DRY EYE DROPS (UNSPECIFIED) [Concomitant]
     Indication: DRY EYE
     Dosage: UNK
     Route: 047

REACTIONS (4)
  - Inappropriate schedule of drug administration [Unknown]
  - Inappropriate schedule of drug administration [Unknown]
  - Therapy cessation [Unknown]
  - Drug ineffective [Unknown]
